FAERS Safety Report 14603807 (Version 2)
Quarter: 2018Q1

REPORT INFORMATION
  Report Type: Report from Study
  Country: CA (occurrence: CA)
  Receive Date: 20180306
  Receipt Date: 20180328
  Transmission Date: 20180509
  Serious: Yes (Other)
  Sender: FDA-Public Use
  Company Number: CA-JNJFOC-20180107959

PATIENT
  Age: 46 Year
  Sex: Male
  Weight: 69 kg

DRUGS (1)
  1. STELARA [Suspect]
     Active Substance: USTEKINUMAB
     Indication: CROHN^S DISEASE
     Dosage: STRENGTH = 90 MG
     Route: 058

REACTIONS (5)
  - Intestinal operation [Unknown]
  - Flank pain [Not Recovered/Not Resolved]
  - Nausea [Not Recovered/Not Resolved]
  - Weight decreased [Unknown]
  - Drug ineffective [Unknown]

NARRATIVE: CASE EVENT DATE: 20170912
